FAERS Safety Report 8950477 (Version 1)
Quarter: 2012Q4

REPORT INFORMATION
  Report Type: Spontaneous
  Country: US (occurrence: None)
  Receive Date: 20121130
  Receipt Date: 20121130
  Transmission Date: 20130627
  Serious: Yes (Disabling, Congenital Anomaly)
  Sender: FDA-Public Use
  Company Number: None

PATIENT
  Sex: Female

DRUGS (1)
  1. C-QUENS [Suspect]
     Indication: CONTRACEPTION
     Route: 048

REACTIONS (3)
  - Congenital joint malformation [None]
  - Limb malformation [None]
  - Maternal drugs affecting foetus [None]
